FAERS Safety Report 7636024-0 (Version None)
Quarter: 2011Q3

REPORT INFORMATION
  Report Type: 
  Country: None (occurrence: None)
  Receive Date: 20110726
  Receipt Date: 20110713
  Transmission Date: 20111222
  Serious: Yes (Other)
  Sender: FDA-Public Use
  Company Number: US-ROCHE-790038

PATIENT
  Sex: Female

DRUGS (1)
  1. BONIVA [Suspect]
     Route: 065
     Dates: start: 20100901

REACTIONS (4)
  - WEIGHT DECREASED [None]
  - MYALGIA [None]
  - PAIN [None]
  - BACK DISORDER [None]
